FAERS Safety Report 7523779-9 (Version None)
Quarter: 2011Q2

REPORT INFORMATION
  Report Type: 
  Country: None (occurrence: None)
  Receive Date: 20110603
  Receipt Date: 20110525
  Transmission Date: 20111010
  Serious: Yes (Death, Life-Threatening, Hospitalization)
  Sender: FDA-Public Use
  Company Number: US-ACTELION-A-US2011-49089

PATIENT

DRUGS (18)
  1. BACTRIM [Concomitant]
  2. FLOMAX [Concomitant]
  3. BUMETANIDE [Concomitant]
  4. ZITHROMAX [Concomitant]
  5. PRAVACHOL [Concomitant]
  6. LIDODERM [Concomitant]
  7. MULTI-VITAMIN [Concomitant]
  8. CELL CEPT [Concomitant]
  9. XANAX [Concomitant]
  10. EPOPROSTENOL SODIUM [Suspect]
     Indication: PULMONARY ARTERIAL HYPERTENSION
     Dosage: 44 NG/KG, PER MIN
     Route: 042
     Dates: start: 20101108, end: 20110517
  11. OXYGEN [Concomitant]
  12. PROGRAF [Concomitant]
  13. PROCHLORPERAZINE TAB [Concomitant]
  14. METOLAZONE [Concomitant]
  15. CORTICOSTEROIDS [Concomitant]
  16. ERGOCALCIFEROL [Concomitant]
  17. ALLOPURINOL [Concomitant]
  18. PANTOPRAZOLE [Concomitant]

REACTIONS (8)
  - ASPIRATION PLEURAL CAVITY [None]
  - IMPLANTABLE PLEURAL CATHETER INSERTION [None]
  - RENAL FAILURE ACUTE [None]
  - BLOOD CREATININE INCREASED [None]
  - CONDITION AGGRAVATED [None]
  - PLEURAL EFFUSION [None]
  - OXYGEN CONSUMPTION INCREASED [None]
  - DYSPNOEA EXERTIONAL [None]
